FAERS Safety Report 5913839-8 (Version None)
Quarter: 2008Q4

REPORT INFORMATION
  Report Type: 
  Country: None (occurrence: None)
  Receive Date: 20081009
  Receipt Date: 20080930
  Transmission Date: 20090506
  Serious: Yes (Hospitalization)
  Sender: FDA-Public Use
  Company Number: A0749846A

PATIENT
  Sex: Female

DRUGS (3)
  1. ONDANSETRON [Suspect]
     Route: 058
     Dates: start: 20080804, end: 20080801
  2. ONDANSETRON [Suspect]
     Dosage: 1TAB THREE TIMES PER DAY
     Route: 048
     Dates: start: 20080801, end: 20080801
  3. NO CONCURRENT MEDICATION [Concomitant]

REACTIONS (7)
  - ABORTION INDUCED [None]
  - DRUG EXPOSURE DURING PREGNANCY [None]
  - INJECTION SITE INDURATION [None]
  - INJECTION SITE RASH [None]
  - INJECTION SITE REACTION [None]
  - NAUSEA [None]
  - VOMITING [None]
